FAERS Safety Report 13428624 (Version 4)
Quarter: 2017Q2

REPORT INFORMATION
  Report Type: Report from Study
  Country: GR (occurrence: GR)
  Receive Date: 20170411
  Receipt Date: 20170502
  Transmission Date: 20170830
  Serious: Yes (Death, Hospitalization)
  Sender: FDA-Public Use
  Company Number: GR-ROCHE-1918487

PATIENT
  Age: 68 Year
  Sex: Male
  Weight: 76 kg

DRUGS (14)
  1. LEXOTANIL [Concomitant]
     Active Substance: BROMAZEPAM
     Route: 048
  2. LYRICA [Concomitant]
     Active Substance: PREGABALIN
     Route: 048
     Dates: start: 20170301
  3. BEGALIN [Concomitant]
     Indication: URINARY TRACT INFECTION
     Route: 042
     Dates: start: 20170310, end: 20170312
  4. TAMIFLU [Concomitant]
     Active Substance: OSELTAMIVIR PHOSPHATE
     Indication: URINARY TRACT INFECTION
     Route: 048
     Dates: start: 20170309, end: 20170313
  5. AUGMENTIN [Concomitant]
     Active Substance: AMOXICILLIN\CLAVULANATE POTASSIUM
     Indication: URINARY TRACT INFECTION
     Route: 048
     Dates: start: 20170316, end: 20170324
  6. FLUCONAZOLE. [Concomitant]
     Active Substance: FLUCONAZOLE
     Indication: URINARY TRACT INFECTION
     Route: 042
     Dates: start: 20170310, end: 20170312
  7. GALVUS [Concomitant]
     Active Substance: VILDAGLIPTIN
     Route: 048
     Dates: start: 2012
  8. NORVASC [Concomitant]
     Active Substance: AMLODIPINE BESYLATE
     Route: 048
     Dates: start: 2004
  9. CONCOR [Concomitant]
     Active Substance: BISOPROLOL FUMARATE
     Route: 048
     Dates: start: 2004
  10. MEROPENEM. [Concomitant]
     Active Substance: MEROPENEM
     Indication: URINARY TRACT INFECTION
     Route: 042
     Dates: start: 20170310, end: 20170315
  11. STABILANOL [Concomitant]
     Indication: URINARY TRACT INFECTION
     Route: 048
     Dates: start: 20170316, end: 20170324
  12. ATEZOLIZUMAB [Suspect]
     Active Substance: ATEZOLIZUMAB
     Indication: MALIGNANT URINARY TRACT NEOPLASM
     Dosage: FIXED DOSE PER PROTOCOL. LAST DOSE PRIOR TO AE ONSET 29/MAR/2017
     Route: 042
     Dates: start: 20170215
  13. FENTADUR [Concomitant]
     Route: 062
     Dates: start: 20170301
  14. OXYGEN. [Concomitant]
     Active Substance: OXYGEN
     Dosage: UNITS LT/MIN?NASAL CANNULA
     Route: 055
     Dates: start: 2005

REACTIONS (1)
  - Respiratory failure [Fatal]

NARRATIVE: CASE EVENT DATE: 20170405
